FAERS Safety Report 5921567-8 (Version None)
Quarter: 2008Q4

REPORT INFORMATION
  Report Type: 
  Country: None (occurrence: None)
  Receive Date: 20081016
  Receipt Date: 20081016
  Transmission Date: 20090506
  Serious: Yes (Death)
  Sender: FDA-Public Use
  Company Number: None

PATIENT
  Age: 60 Year
  Sex: Female
  Weight: 53 kg

DRUGS (1)
  1. GADOLINIUM [Suspect]
     Dates: start: 19900101, end: 20000101

REACTIONS (1)
  - NEPHROGENIC SYSTEMIC FIBROSIS [None]
